FAERS Safety Report 9722891 (Version 1)
Quarter: 2013Q4

REPORT INFORMATION
  Report Type: Spontaneous
  Country: US (occurrence: None)
  Receive Date: 20131126
  Receipt Date: 20131126
  Transmission Date: 20140711
  Serious: Yes (Death)
  Sender: FDA-Public Use
  Company Number: 2013AP010065

PATIENT
  Age: 45 Year
  Sex: Female
  Weight: 67 kg

DRUGS (1)
  1. FERRIPROX [Suspect]
     Indication: NEURODEGENERATIVE DISORDER
     Dosage: 30 MG/KG; QD; PO
     Route: 048
     Dates: start: 20130404

REACTIONS (1)
  - Cardiac disorder [None]
